FAERS Safety Report 6007416-0 (Version None)
Quarter: 2008Q4

REPORT INFORMATION
  Report Type: 
  Country: None (occurrence: None)
  Receive Date: 20081217
  Receipt Date: 20080613
  Transmission Date: 20090506
  Serious: No
  Sender: FDA-Public Use
  Company Number: US-ASTRAZENECA-2008UW07611

PATIENT
  Age: 63 Year
  Sex: Female
  Weight: 65.9 kg

DRUGS (4)
  1. CRESTOR [Suspect]
     Indication: BLOOD CHOLESTEROL INCREASED
     Route: 048
     Dates: start: 20060501, end: 20080314
  2. ACN [Concomitant]
  3. PROTONIX [Concomitant]
  4. CODEINE SUL TAB [Concomitant]

REACTIONS (2)
  - GASTROENTERITIS [None]
  - MYALGIA [None]
